FAERS Safety Report 8096354-8 (Version None)
Quarter: 2012Q1

REPORT INFORMATION
  Report Type: 
  Country: None (occurrence: None)
  Receive Date: 20120131
  Receipt Date: 20120124
  Transmission Date: 20120608
  Serious: Yes (Hospitalization)
  Sender: FDA-Public Use
  Company Number: PHHY2012ES006196

PATIENT
  Age: 55 Year
  Sex: Male

DRUGS (1)
  1. OMEPRAZOLE [Suspect]
     Indication: HIATUS HERNIA
     Dosage: 20 MG, DAILY

REACTIONS (17)
  - MUSCLE SPASMS [None]
  - TROUSSEAU'S SIGN [None]
  - HYPOKALAEMIA [None]
  - PALPITATIONS [None]
  - ABDOMINAL PAIN UPPER [None]
  - BLOOD GASTRIN INCREASED [None]
  - BLOOD CHROMOGRANIN A INCREASED [None]
  - DIARRHOEA [None]
  - PARAESTHESIA [None]
  - TREMOR [None]
  - HYPOMAGNESAEMIA [None]
  - CHVOSTEK'S SIGN [None]
  - NAUSEA [None]
  - VOMITING [None]
  - BLOOD CALCIUM DECREASED [None]
  - ELECTROCARDIOGRAM QT PROLONGED [None]
  - BLOOD PARATHYROID HORMONE DECREASED [None]
